FAERS Safety Report 7524883-1 (Version None)
Quarter: 2011Q2

REPORT INFORMATION
  Report Type: 
  Country: None (occurrence: None)
  Receive Date: 20110602
  Receipt Date: 20110602
  Transmission Date: 20111010
  Serious: Yes (Other)
  Sender: FDA-Public Use
  Company Number: None

PATIENT
  Age: 29 Year
  Sex: Male
  Weight: 90.7194 kg

DRUGS (4)
  1. OXYCONTIN [Suspect]
     Indication: RHEUMATOID ARTHRITIS
     Dosage: 60MG TABLET 3 TIMES DAILY PO
     Route: 048
     Dates: start: 20020101, end: 20100901
  2. OXYCONTIN [Suspect]
     Indication: ANKYLOSING SPONDYLITIS
     Dosage: 60MG TABLET 3 TIMES DAILY PO
     Route: 048
     Dates: start: 20020101, end: 20100901
  3. OXYCONTIN [Suspect]
     Indication: RHEUMATOID ARTHRITIS
     Dosage: 60MG TABLET 3 TIMES DAILY PO
     Route: 048
     Dates: start: 20100901, end: 20110601
  4. OXYCONTIN [Suspect]
     Indication: ANKYLOSING SPONDYLITIS
     Dosage: 60MG TABLET 3 TIMES DAILY PO
     Route: 048
     Dates: start: 20100901, end: 20110601

REACTIONS (2)
  - DRUG WITHDRAWAL SYNDROME [None]
  - ABDOMINAL PAIN UPPER [None]
